FAERS Safety Report 24329285 (Version 4)
Quarter: 2024Q4

REPORT INFORMATION
  Report Type: Spontaneous
  Country: JP (occurrence: JP)
  Receive Date: 20240917
  Receipt Date: 20241017
  Transmission Date: 20250114
  Serious: No
  Sender: JOHNSON AND JOHNSON
  Company Number: JP-JNJFOC-20240902761

PATIENT

DRUGS (2)
  1. SIMPONI [Suspect]
     Active Substance: GOLIMUMAB
     Indication: Product used for unknown indication
     Dosage: STRENGTH- 50.00 MG / 0.50 ML
     Route: 058
     Dates: end: 2024
  2. SIMPONI [Suspect]
     Active Substance: GOLIMUMAB
     Dosage: STRENGTH- 50.00 MG / 0.50 ML
     Route: 058
     Dates: end: 2024

REACTIONS (3)
  - Product container issue [Unknown]
  - Device infusion issue [Unknown]
  - Underdose [Unknown]
